FAERS Safety Report 4773309-X (Version None)
Quarter: 2005Q3

REPORT INFORMATION
  Report Type: 
  Country: None (occurrence: None)
  Receive Date: 20050920
  Receipt Date: 20050914
  Transmission Date: 20060218
  Serious: Yes (Death)
  Sender: FDA-Public Use
  Company Number: PHBS2005JP13619

PATIENT
  Age: 66 Year
  Sex: Female

DRUGS (4)
  1. TERBINAFINE HCL [Suspect]
     Indication: FUNGAL INFECTION
     Dosage: 125-250 MG/DAY
     Route: 048
  2. AMPHOTERICIN B [Suspect]
     Indication: FUNGAL INFECTION
     Dosage: 0.75-1 MG/KG/DAY
  3. FLUCYTOSINE [Suspect]
     Indication: FUNGAL INFECTION
     Dosage: 8 G/DAY
     Route: 048
  4. ITRACONAZOLE [Suspect]
     Indication: FUNGAL INFECTION
     Dosage: 200 MG/DAY
     Route: 048

REACTIONS (4)
  - BRAIN ABSCESS [None]
  - CONDITION AGGRAVATED [None]
  - DRUG INEFFECTIVE [None]
  - LUNG ABSCESS [None]
